FAERS Safety Report 17600209 (Version 4)
Quarter: 2020Q2

REPORT INFORMATION
  Report Type: Spontaneous
  Country: US (occurrence: US)
  Receive Date: 20200330
  Receipt Date: 20200409
  Transmission Date: 20200713
  Serious: No
  Sender: FDA-Public Use
  Company Number: US-AMGEN-USASP2020050778

PATIENT
  Age: 60 Year
  Sex: Male

DRUGS (3)
  1. NEUPOGEN [Suspect]
     Active Substance: FILGRASTIM
     Indication: IDIOPATHIC NEUTROPENIA
     Dosage: UNK UNK, QD (300 MCG VIAL LASTS 3 OR 4 DAYS) (SMALL DOSE EVERY DAY)
     Route: 065
     Dates: start: 2007
  2. NEULASTA [Suspect]
     Active Substance: PEGFILGRASTIM
     Indication: IDIOPATHIC NEUTROPENIA
     Dosage: UNK
     Route: 065
  3. NIVESTYM [Suspect]
     Active Substance: FILGRASTIM-AAFI
     Indication: IDIOPATHIC NEUTROPENIA
     Dosage: UNK UNK, QD (FOR THREE DAYS)
     Route: 065

REACTIONS (6)
  - Adverse reaction [Unknown]
  - Insomnia [Recovered/Resolved]
  - Bone pain [Recovered/Resolved]
  - Fatigue [Recovered/Resolved]
  - Aphthous ulcer [Recovered/Resolved]
  - White blood cell count decreased [Recovered/Resolved]
